FAERS Safety Report 11048015 (Version 1)
Quarter: 2015Q2

REPORT INFORMATION
  Report Type: Spontaneous
  Country: US (occurrence: US)
  Receive Date: 20150420
  Receipt Date: 20150420
  Transmission Date: 20150821
  Serious: No
  Sender: FDA-Public Use
  Company Number: US-PFIZER INC-2015128581

PATIENT
  Sex: Female

DRUGS (2)
  1. TAPAZOLE [Suspect]
     Active Substance: METHIMAZOLE
     Dosage: 10 MG, UNK
  2. TAPAZOLE [Suspect]
     Active Substance: METHIMAZOLE
     Dosage: 5 MG, UNK

REACTIONS (2)
  - Drug intolerance [Unknown]
  - Feeling abnormal [Unknown]
